FAERS Safety Report 5659414-4 (Version None)
Quarter: 2008Q1

REPORT INFORMATION
  Report Type: 
  Country: None (occurrence: None)
  Receive Date: 20080311
  Receipt Date: 20080226
  Transmission Date: 20080703
  Serious: Yes (Hospitalization, Disabling)
  Sender: FDA-Public Use
  Company Number: GB-RANBAXY-2008RR-13359

PATIENT

DRUGS (8)
  1. ENALAPRIL MALEATE TABLETS 2.5MG [Suspect]
     Indication: HYPERTENSION
     Dosage: 2.5 MG, UNK
     Route: 048
     Dates: start: 20061110, end: 20061212
  2. ENALAPRIL MALEATE TABLETS 2.5MG [Suspect]
     Dosage: 5 MG, UNK
     Route: 048
     Dates: start: 20061013
  3. BECLOMETHASONE DIPROPIONATE [Concomitant]
     Indication: ASTHMA
     Dosage: 100 UG, BID
     Route: 055
     Dates: start: 20050930
  4. BENDROFLUMETHIAZIDE [Concomitant]
  5. DIAZEPAM [Concomitant]
  6. FELODIPINE [Concomitant]
  7. LEVOTHYROXINE SODIUM [Concomitant]
     Indication: HYPOTHYROIDISM
     Dosage: 75 UG, UNK
     Route: 048
  8. SIMVASTATIN [Concomitant]
     Indication: BLOOD CHOLESTEROL INCREASED
     Dosage: 40 MG, UNK
     Route: 048
     Dates: start: 20060821

REACTIONS (1)
  - MANIA [None]
